FAERS Safety Report 7832975 (Version 4)
Quarter: 2013Q4

REPORT INFORMATION
  Report Type: Spontaneous
  Country: US (occurrence: US)
  Receive Date: 20110228
  Receipt Date: 20131129
  Transmission Date: 20140711
  Serious: Yes (Other)
  Sender: FDA-Public Use
  Company Number: US-ROCHE-734308

PATIENT
  Age: 29 Year
  Sex: Female
  Weight: 74.8 kg

DRUGS (8)
  1. ACCUTANE [Suspect]
     Indication: ACNE
     Dosage: 40 MG ALTERNATING WITH 80MG
     Route: 048
     Dates: start: 2003, end: 2003
  2. ACCUTANE [Suspect]
     Route: 065
  3. ACCUTANE [Suspect]
     Route: 065
     Dates: start: 20050101, end: 20061231
  4. ACCUTANE [Suspect]
     Route: 065
     Dates: start: 200711, end: 20071211
  5. INSULIN [Concomitant]
  6. LISINOPRIL [Concomitant]
  7. VYTORIN [Concomitant]
  8. DOXYCYCLINE [Concomitant]
     Route: 065

REACTIONS (7)
  - Colitis ulcerative [Unknown]
  - Gastrointestinal injury [Unknown]
  - Depression [Unknown]
  - Suicidal ideation [Unknown]
  - Irritable bowel syndrome [Unknown]
  - Blood cholesterol increased [Unknown]
  - Blood alkaline phosphatase increased [Unknown]
